FAERS Safety Report 8254799-7 (Version None)
Quarter: 2012Q2

REPORT INFORMATION
  Report Type: 
  Country: None (occurrence: None)
  Receive Date: 20120403
  Receipt Date: 20120329
  Transmission Date: 20120825
  Serious: Yes (Hospitalization)
  Sender: FDA-Public Use
  Company Number: PHHO2009BE14100

PATIENT
  Sex: Male
  Weight: 93 kg

DRUGS (6)
  1. AFINITOR [Suspect]
     Dosage: 10 MG, QD
     Route: 048
     Dates: start: 20091102, end: 20091112
  2. AVASTIN [Suspect]
     Indication: METASTATIC RENAL CELL CARCINOMA
     Dosage: 10 MG/KG, UNK
     Dates: start: 20091102, end: 20091112
  3. AFINITOR [Suspect]
     Dosage: 5 MG, QD
     Route: 048
     Dates: start: 20091117, end: 20091129
  4. AFINITOR [Suspect]
     Dosage: 5 MG, QD
     Route: 048
     Dates: start: 20091221, end: 20100112
  5. AFINITOR [Suspect]
     Indication: METASTATIC RENAL CELL CARCINOMA
     Dosage: 5 MG, Q48H
     Route: 048
     Dates: end: 20090118
  6. AVASTIN [Suspect]
     Dosage: 10 MG/KG, UNK
     Dates: end: 20100112

REACTIONS (14)
  - DYSPHAGIA [None]
  - FATIGUE [None]
  - DECREASED APPETITE [None]
  - HAEMORRHOIDS [None]
  - MUCOSAL INFLAMMATION [None]
  - NAUSEA [None]
  - WEIGHT DECREASED [None]
  - BACK PAIN [None]
  - DEHYDRATION [None]
  - THROMBOCYTOPENIA [None]
  - TOOTHACHE [None]
  - TESTICULAR PAIN [None]
  - ANAL ABSCESS [None]
  - PAIN IN EXTREMITY [None]
